FAERS Safety Report 8387546-9 (Version None)
Quarter: 2012Q2

REPORT INFORMATION
  Report Type: 
  Country: None (occurrence: None)
  Receive Date: 20120525
  Receipt Date: 20120523
  Transmission Date: 20120825
  Serious: Yes (Death)
  Sender: FDA-Public Use
  Company Number: PHHY2012BR044445

PATIENT
  Age: 69 Year
  Sex: Female

DRUGS (3)
  1. DIOVAN [Suspect]
     Indication: HYPERTENSION
     Dosage: 160 MG, UNK
  2. DIOVAN [Suspect]
     Dosage: 320 MG, UNK
  3. GALVUS [Suspect]
     Indication: DIABETES MELLITUS
     Dosage: UNK UKN, UNK

REACTIONS (7)
  - DIABETIC COMPLICATION [None]
  - PAIN IN EXTREMITY [None]
  - PULMONARY FIBROSIS [None]
  - DIABETIC FOOT [None]
  - PNEUMONIA [None]
  - WOUND NECROSIS [None]
  - URINARY TRACT INFECTION [None]
